FAERS Safety Report 10364628 (Version 1)
Quarter: 2014Q3

REPORT INFORMATION
  Report Type: Report from Study
  Country: US (occurrence: US)
  Receive Date: 20140806
  Receipt Date: 20140806
  Transmission Date: 20150326
  Serious: Yes (Hospitalization)
  Sender: FDA-Public Use
  Company Number: PHEH2014US015408

PATIENT
  Sex: Female

DRUGS (1)
  1. TOBI [Suspect]
     Active Substance: TOBRAMYCIN
     Dosage: UNK

REACTIONS (4)
  - Duodenitis [Unknown]
  - Autoimmune disorder [Unknown]
  - Inflammation [Unknown]
  - Abdominal pain [Unknown]
